FAERS Safety Report 8539922-9 (Version None)
Quarter: 2012Q3

REPORT INFORMATION
  Report Type: 
  Country: None (occurrence: None)
  Receive Date: 20120726
  Receipt Date: 20120711
  Transmission Date: 20120928
  Serious: Yes (Other)
  Sender: FDA-Public Use
  Company Number: US-ARROW-2012-12425

PATIENT
  Age: 70 Year
  Sex: Male

DRUGS (3)
  1. METHADONE HYDROCHLORIDE [Suspect]
     Indication: PAIN
     Dosage: 15 MG, DAILY
     Route: 065
  2. FENTANYL-100 [Suspect]
     Indication: PAIN
     Dosage: 350 MG
     Route: 062
  3. MORPHINE SULFATE [Suspect]
     Indication: PAIN
     Dosage: UNK
     Route: 065

REACTIONS (4)
  - DRUG INEFFECTIVE [None]
  - URINARY RETENTION [None]
  - MYOCLONUS [None]
  - TOXICITY TO VARIOUS AGENTS [None]
